FAERS Safety Report 14341212 (Version 2)
Quarter: 2024Q4

REPORT INFORMATION
  Report Type: Spontaneous
  Country: ES (occurrence: ES)
  Receive Date: 20180102
  Receipt Date: 20241220
  Transmission Date: 20250114
  Serious: Yes (Death, Hospitalization, Other)
  Sender: RANBAXY
  Company Number: ES-EMA-DD-20171215-DEEPAKEVHPDD-095903

PATIENT
  Age: 36 Year
  Sex: Male

DRUGS (4)
  1. TOPIRAMATE [Suspect]
     Active Substance: TOPIRAMATE
     Indication: Mixed anxiety and depressive disorder
     Dosage: UNK
     Route: 048
  2. ARIPIPRAZOLE [Suspect]
     Active Substance: ARIPIPRAZOLE
     Indication: Mixed anxiety and depressive disorder
     Dosage: UNK
     Route: 065
  3. VENLAFAXINE HCL [Suspect]
     Active Substance: VENLAFAXINE HYDROCHLORIDE
     Indication: Mixed anxiety and depressive disorder
     Dosage: UNK
     Route: 065
  4. ATORVASTATIN [Concomitant]
     Active Substance: ATORVASTATIN
     Indication: Product used for unknown indication
     Dosage: UNK

REACTIONS (2)
  - Heat stroke [Fatal]
  - Product use in unapproved indication [Fatal]
